FAERS Safety Report 4683648-9 (Version None)
Quarter: 2005Q2

REPORT INFORMATION
  Report Type: 
  Country: None (occurrence: None)
  Receive Date: 20050602
  Receipt Date: 20050318
  Transmission Date: 20051028
  Serious: Yes (Other)
  Sender: FDA-Public Use
  Company Number: 200510090BWH

PATIENT
  Age: 45 Year
  Sex: Male
  Weight: 90.7194 kg

DRUGS (2)
  1. LEVITRA [Suspect]
     Dosage: ORAL
     Route: 048
     Dates: start: 20050114
  2. ZOLOFT [Concomitant]

REACTIONS (3)
  - BLOOD GASES ABNORMAL [None]
  - ERECTILE DYSFUNCTION [None]
  - PRIAPISM [None]
